FAERS Safety Report 4524244-3 (Version None)
Quarter: 2004Q4

REPORT INFORMATION
  Report Type: 
  Country: None (occurrence: None)
  Receive Date: 20041119
  Receipt Date: 20040922
  Transmission Date: 20050328
  Serious: No
  Sender: FDA-Public Use
  Company Number: PHEH2004US10251

PATIENT
  Age: 38 Year
  Sex: Female
  Weight: 54.9 kg

DRUGS (4)
  1. ZELNORM [Suspect]
     Indication: IRRITABLE BOWEL SYNDROME
     Dosage: 6 MG, BID
  2. FIORICET [Suspect]
     Indication: PAIN
     Dosage: ORAL
     Route: 048
  3. FLEXERIL [Suspect]
     Indication: MUSCLE RELAXANT THERAPY
     Dosage: ORAL
     Route: 048
  4. VALIUM [Concomitant]

REACTIONS (3)
  - DRUG INTERACTION [None]
  - PAIN [None]
  - THERAPEUTIC PRODUCT INEFFECTIVE [None]
